FAERS Safety Report 10723505 (Version 1)
Quarter: 2015Q1

REPORT INFORMATION
  Report Type: Spontaneous
  Country: FI (occurrence: None)
  Receive Date: 20150115
  Receipt Date: 20150115
  Transmission Date: 20150721
  Serious: Yes (Other)
  Sender: FDA-Public Use
  Company Number: FK201500072

PATIENT
  Age: 20 Year
  Sex: Female

DRUGS (3)
  1. OXCARBAZEPINE(OXCARBAZEPINE) [Concomitant]
  2. VALPROATE (MANUFACTURER UNKNOWN) (VALPROATE SODIUM) (VALPROATE SODIUM) [Suspect]
     Active Substance: VALPROATE SODIUM
     Indication: EPILEPSY
  3. CALCINEURIN INHIBITOR(CALCINEURIN INHIBITORS) [Concomitant]

REACTIONS (11)
  - Status epilepticus [None]
  - Vomiting [None]
  - Balance disorder [None]
  - Acute hepatic failure [None]
  - Liver transplant [None]
  - Metabolic encephalopathy [None]
  - Pancreatitis [None]
  - Ascites [None]
  - Nausea [None]
  - Hepatic encephalopathy [None]
  - Fatigue [None]
